FAERS Safety Report 17746527 (Version 1)
Quarter: 2020Q2

REPORT INFORMATION
  Report Type: Spontaneous
  Country: US (occurrence: US)
  Receive Date: 20200505
  Receipt Date: 20200505
  Transmission Date: 20200714
  Serious: No
  Sender: FDA-Public Use
  Company Number: US-ROCHE-2393902

PATIENT
  Sex: Male
  Weight: 74.46 kg

DRUGS (1)
  1. ESBRIET [Suspect]
     Active Substance: PIRFENIDONE
     Indication: IDIOPATHIC PULMONARY FIBROSIS
     Dosage: 3 PILLS, 3 TIMES DAILY
     Route: 048
     Dates: start: 20180601, end: 20190822

REACTIONS (3)
  - Taste disorder [Not Recovered/Not Resolved]
  - Photosensitivity reaction [Recovered/Resolved]
  - Fatigue [Not Recovered/Not Resolved]
